FAERS Safety Report 12970630 (Version 2)
Quarter: 2017Q1

REPORT INFORMATION
  Report Type: Report from Study
  Country: IE (occurrence: IE)
  Receive Date: 20161123
  Receipt Date: 20170109
  Transmission Date: 20170428
  Serious: Yes (Other)
  Sender: FDA-Public Use
  Company Number: PHFR2016IE009174

PATIENT
  Age: 74 Year
  Sex: Female

DRUGS (20)
  1. CARDICOR [Concomitant]
     Active Substance: BISOPROLOL
     Indication: CARDIAC FAILURE
     Dosage: 2.5 MG, QD
     Route: 048
     Dates: start: 20110820
  2. FUROSEMIDE. [Concomitant]
     Active Substance: FUROSEMIDE
     Indication: PRODUCT USED FOR UNKNOWN INDICATION
     Dosage: 20 MG, QD
     Route: 065
     Dates: start: 20160321
  3. CALCICHEW-D3 FORTE [Concomitant]
     Active Substance: CALCIUM\CHOLECALCIFEROL
     Indication: OSTEOPOROSIS
     Dosage: (500 MG + 400 UNITS)
     Route: 065
     Dates: start: 20111013
  4. ULTIBRO BREEZHALER [Suspect]
     Active Substance: GLYCOPYRRONIUM\INDACATEROL
     Indication: CHRONIC OBSTRUCTIVE PULMONARY DISEASE
     Route: 055
     Dates: start: 20150306
  5. DIAZEPAM. [Concomitant]
     Active Substance: DIAZEPAM
     Indication: ANXIETY
     Dosage: 2 MG, BID
     Route: 065
     Dates: start: 20111013
  6. NEXAZOLE [Concomitant]
     Indication: GASTROINTESTINAL DISORDER
     Dosage: 40 MG, QD
     Route: 048
     Dates: start: 20120616
  7. NUSEALS ASPIRN [Concomitant]
     Indication: CARDIAC DISORDER
     Dosage: 75 MG, QD
     Route: 065
  8. PROZIT [Concomitant]
     Indication: ANXIETY
  9. DICLAC [Concomitant]
     Active Substance: DICLOFENAC
     Indication: PRODUCT USED FOR UNKNOWN INDICATION
     Dosage: 100 MG, QD
     Route: 065
     Dates: start: 20160426
  10. AMLODE [Concomitant]
     Active Substance: AMLODIPINE BESYLATE
     Indication: HYPERTENSION
     Dosage: 10 MG, QD
     Route: 048
     Dates: start: 20110909
  11. CRESTOR [Concomitant]
     Active Substance: ROSUVASTATIN CALCIUM
     Indication: PRODUCT USED FOR UNKNOWN INDICATION
     Dosage: 40 MG, QD
     Route: 048
     Dates: start: 20060717
  12. ELTROXIN [Concomitant]
     Active Substance: LEVOTHYROXINE
     Indication: HYPOTHYROIDISM
     Dosage: 50 UG, QD
     Dates: start: 20150706
  13. GERIFLOX [Concomitant]
     Indication: PRODUCT USED FOR UNKNOWN INDICATION
     Dosage: 500 MG, QD
     Route: 048
  14. PREGABALIN. [Concomitant]
     Active Substance: PREGABALIN
     Indication: PAIN
  15. QUININE SULPHATE [Concomitant]
     Active Substance: QUININE SULFATE
     Indication: RESTLESS LEGS SYNDROME
     Dosage: 300 MG, QD
     Route: 065
  16. PREGABALIN. [Concomitant]
     Active Substance: PREGABALIN
     Indication: ANXIETY
     Dosage: 50 MG, QD
     Route: 065
     Dates: start: 20160809
  17. ZYDOL [Concomitant]
     Active Substance: TRAMADOL HYDROCHLORIDE
     Indication: PRODUCT USED FOR UNKNOWN INDICATION
     Dosage: 50 MG, UNK (BID PRN)
     Route: 065
     Dates: start: 20131111
  18. VALTAN [Concomitant]
     Indication: HYPERTENSION
     Dosage: 80 OT, QD
     Route: 048
     Dates: start: 20160828
  19. LETROZOLE. [Concomitant]
     Active Substance: LETROZOLE
     Indication: BREAST CANCER
     Dosage: 2.5 MG, QD
     Route: 065
     Dates: start: 20120321
  20. PROZIT [Concomitant]
     Indication: DEPRESSION
     Dosage: 20 MG, QD
     Dates: start: 20130215

REACTIONS (18)
  - Musculoskeletal pain [Unknown]
  - Cough [Unknown]
  - Malaise [Unknown]
  - Foot deformity [Unknown]
  - Neck pain [Unknown]
  - Bronchospasm [Unknown]
  - Fall [Unknown]
  - Dermatitis [Unknown]
  - Arthralgia [Unknown]
  - Localised infection [Unknown]
  - Nasopharyngitis [Unknown]
  - Infected skin ulcer [Unknown]
  - Muscle spasms [Unknown]
  - Pain in extremity [Unknown]
  - Headache [Unknown]
  - Diarrhoea [Unknown]
  - Rib fracture [Unknown]
  - Diabetes mellitus [Unknown]

NARRATIVE: CASE EVENT DATE: 20160118
